FAERS Safety Report 9657315 (Version 3)
Quarter: 2014Q1

REPORT INFORMATION
  Report Type: Spontaneous
  Country: CA (occurrence: CA)
  Receive Date: 20131030
  Receipt Date: 20140116
  Transmission Date: 20141002
  Serious: Yes (Hospitalization)
  Sender: FDA-Public Use
  Company Number: CA-GLAXOSMITHKLINE-A1046541A

PATIENT
  Age: 84 Year
  Sex: Male

DRUGS (1)
  1. TAFINLAR [Suspect]
     Indication: METASTATIC MALIGNANT MELANOMA
     Dosage: 300MG PER DAY
     Route: 065

REACTIONS (12)
  - Candida infection [Recovered/Resolved]
  - Dehydration [Unknown]
  - Dysphagia [Unknown]
  - Vomiting [Unknown]
  - Decreased appetite [Unknown]
  - Incoherent [Unknown]
  - Malaise [Unknown]
  - Constipation [Not Recovered/Not Resolved]
  - Intestinal obstruction [Unknown]
  - Diarrhoea [Unknown]
  - Hypophagia [Unknown]
  - Terminal state [Unknown]
